FAERS Safety Report 4423550-0 (Version None)
Quarter: 2004Q3

REPORT INFORMATION
  Report Type: 
  Country: None (occurrence: None)
  Receive Date: 20040714
  Receipt Date: 20040428
  Transmission Date: 20050211
  Serious: Yes (Hospitalization)
  Sender: FDA-Public Use
  Company Number: 200413230US

PATIENT
  Age: 61 Year
  Sex: Male

DRUGS (19)
  1. TAXOTERE [Suspect]
     Indication: NEOPLASM MALIGNANT
     Dosage: 80 (160MG) MG/M**2
     Dates: start: 20040428, end: 20040428
  2. TAXOTERE [Suspect]
     Indication: NEOPLASM MALIGNANT
     Dosage: 80 MG/M**2
  3. DECADRON [Concomitant]
  4. TYLENOL [Concomitant]
  5. IPRATROPIUM BROMIDE, SALBUTAMOL SULFATE (COMBIVENT) [Concomitant]
  6. PARACETAMOL, OXYCODONE HYDROCHLORIDE (PERCOCET) [Concomitant]
  7. CARVEDILOL [Concomitant]
  8. DARBEPOETIN ALFA (ARANESP) [Concomitant]
  9. ARICEPT [Concomitant]
  10. HALOPERIDOL [Concomitant]
  11. POTASSIUM [Concomitant]
  12. LACTULOSE [Concomitant]
  13. LISINOPRIL [Concomitant]
  14. ATIVAN [Concomitant]
  15. OXAZEPAM [Concomitant]
  16. KYTRIL [Concomitant]
  17. PAXIL [Concomitant]
  18. PHENYTOIN SODIUM [Concomitant]
  19. ZANTAC [Concomitant]

REACTIONS (4)
  - BLOOD PRESSURE DECREASED [None]
  - CHEST DISCOMFORT [None]
  - EYE ROLLING [None]
  - HYPERSENSITIVITY [None]
